FAERS Safety Report 5521897-8 (Version None)
Quarter: 2007Q4

REPORT INFORMATION
  Report Type: 
  Country: None (occurrence: None)
  Receive Date: 20071115
  Receipt Date: 20071102
  Transmission Date: 20080405
  Serious: Yes (Hospitalization, Disabling)
  Sender: FDA-Public Use
  Company Number: S07-NOR-05759-01

PATIENT
  Age: 56 Year
  Sex: Female

DRUGS (9)
  1. ESCITALOPRAM [Suspect]
     Indication: ANXIETY
     Dosage: 5 MG QD PO
     Route: 048
     Dates: start: 20041001, end: 20050401
  2. ESCITALOPRAM [Suspect]
     Indication: DEPRESSION
     Dosage: 5 MG QD PO
     Route: 048
     Dates: start: 20041001, end: 20050401
  3. ESCITALOPRAM [Suspect]
     Indication: ANXIETY
     Dosage: 10 MG QD PO
     Route: 048
     Dates: start: 20050401, end: 20070531
  4. ESCITALOPRAM [Suspect]
     Indication: DEPRESSION
     Dosage: 10 MG QD PO
     Route: 048
     Dates: start: 20050401, end: 20070531
  5. ADALAT OROS (NIFEDIPINE) [Concomitant]
  6. IRBESARTAN [Concomitant]
  7. LIPITOR [Concomitant]
  8. FUROSEMIDE [Concomitant]
  9. LEVOTHYROXINE SODIUM [Concomitant]

REACTIONS (6)
  - DEAFNESS [None]
  - DIZZINESS [None]
  - INFLUENZA [None]
  - NAUSEA [None]
  - SYNCOPE [None]
  - VOMITING [None]
